FAERS Safety Report 6643316-0 (Version None)
Quarter: 2010Q1

REPORT INFORMATION
  Report Type: 
  Country: None (occurrence: None)
  Receive Date: 20100319
  Receipt Date: 20100309
  Transmission Date: 20100710
  Serious: Yes (Other)
  Sender: FDA-Public Use
  Company Number: JP-ROCHE-691806

PATIENT
  Sex: Female

DRUGS (13)
  1. TOCILIZUMAB [Suspect]
     Indication: RHEUMATOID ARTHRITIS
     Route: 041
     Dates: start: 20090611, end: 20090611
  2. TOCILIZUMAB [Suspect]
     Route: 041
     Dates: start: 20090710, end: 20090710
  3. TOCILIZUMAB [Suspect]
     Route: 041
     Dates: start: 20090807, end: 20090807
  4. TOCILIZUMAB [Suspect]
     Route: 041
     Dates: start: 20090904, end: 20090904
  5. TOCILIZUMAB [Suspect]
     Route: 041
     Dates: start: 20091009, end: 20091009
  6. TOCILIZUMAB [Suspect]
     Route: 041
     Dates: start: 20100118
  7. METHOTREXATE [Suspect]
     Indication: RHEUMATOID ARTHRITIS
     Dosage: FORM: PERORAL AGENT. DRUG REPORTED: UNKNOWNDRUG (METHOTREXATE)
     Route: 048
     Dates: end: 20090908
  8. FOLIC ACID [Suspect]
     Indication: PROPHYLAXIS
     Dosage: FORM: PERORAL AGENT.
     Route: 048
     Dates: end: 20090908
  9. PROGRAF [Concomitant]
     Dosage: FORM: PERORAL AGENT
     Route: 048
     Dates: start: 20080411, end: 20090710
  10. LOXONIN [Concomitant]
     Dosage: FORM: PERORAL AGENT
     Route: 048
     Dates: end: 20090807
  11. OMEPRAZOLE [Concomitant]
     Route: 048
     Dates: end: 20090807
  12. MUCOSTA [Concomitant]
     Dosage: FORM: PERORAL AGENT.
     Route: 048
     Dates: end: 20090807
  13. COTRIM [Concomitant]
     Dosage: FORM: GRANULATED POWDER.
     Route: 048
     Dates: start: 20090908, end: 20091106

REACTIONS (2)
  - LIVER DISORDER [None]
  - UTERINE LEIOMYOMA [None]
